FAERS Safety Report 22043614 (Version 1)
Quarter: 2023Q1

REPORT INFORMATION
  Report Type: Spontaneous
  Country: IN (occurrence: IN)
  Receive Date: 20230228
  Receipt Date: 20230228
  Transmission Date: 20230418
  Serious: Yes (Other)
  Sender: FDA-Public Use
  Company Number: IN-002147023-NVSC2023IN044256

PATIENT
  Age: 32 Year
  Sex: Female

DRUGS (10)
  1. RIBOCICLIB [Suspect]
     Active Substance: RIBOCICLIB
     Indication: Breast cancer metastatic
     Dosage: 600 MG, QD (21 DAYS AND 7 DAYS OFF)
     Route: 065
     Dates: start: 20210901, end: 20211003
  2. RIBOCICLIB [Suspect]
     Active Substance: RIBOCICLIB
     Dosage: 400 MG, QD (21 DAYS AND 7 DAYS OFF)
     Route: 065
     Dates: start: 20211004
  3. RIBOCICLIB [Suspect]
     Active Substance: RIBOCICLIB
     Dosage: 400 MG, QD (21 DAYS AND 7 DAYS OFF)
     Route: 065
     Dates: start: 20220103
  4. RIBOCICLIB [Suspect]
     Active Substance: RIBOCICLIB
     Dosage: 400 MG, QD (21 DAYS AND 7 DAYS OFF)
     Route: 065
     Dates: start: 20220304
  5. RIBOCICLIB [Suspect]
     Active Substance: RIBOCICLIB
     Dosage: 400 MG, QD (21 DAYS AND 7 DAYS OFF)
     Route: 065
     Dates: start: 20220504
  6. RIBOCICLIB [Suspect]
     Active Substance: RIBOCICLIB
     Dosage: 400 MG, QD (21 DAYS AND 7 DAYS OFF)
     Route: 065
     Dates: start: 20220706
  7. RIBOCICLIB [Suspect]
     Active Substance: RIBOCICLIB
     Dosage: 400 MG, QD (21 DAYS AND 7 DAYS OFF)
     Route: 065
     Dates: start: 20221012
  8. RIBOCICLIB [Suspect]
     Active Substance: RIBOCICLIB
     Dosage: 400 MG, QD (21 DAYS AND 7 DAYS OFF)
     Route: 065
     Dates: start: 20221130
  9. RIBOCICLIB [Suspect]
     Active Substance: RIBOCICLIB
     Dosage: 400 MG, QD (21 DAYS AND 7 DAYS OFF)
     Route: 065
     Dates: start: 20230106
  10. RIBOCICLIB [Suspect]
     Active Substance: RIBOCICLIB
     Dosage: 400 MG, QD (21 DAYS AND 7 DAYS OFF)
     Route: 065
     Dates: start: 20230203

REACTIONS (4)
  - Loss of consciousness [Unknown]
  - Skin hypertrophy [Unknown]
  - Cholelithiasis [Unknown]
  - Platelet count decreased [Unknown]

NARRATIVE: CASE EVENT DATE: 20220430
